FAERS Safety Report 24189121 (Version 4)
Quarter: 2024Q3

REPORT INFORMATION
  Report Type: Spontaneous
  Country: US (occurrence: US)
  Receive Date: 20240808
  Receipt Date: 20240927
  Transmission Date: 20241016
  Serious: Yes (Other)
  Sender: GILEAD
  Company Number: US-GILEAD-2024-0683389

PATIENT
  Age: 45 Year
  Sex: Male

DRUGS (1)
  1. COMPLERA [Suspect]
     Active Substance: EMTRICITABINE\RILPIVIRINE HYDROCHLORIDE\TENOFOVIR DISOPROXIL FUMARATE
     Indication: HIV infection
     Dosage: UNK
     Route: 048
     Dates: start: 20170101, end: 20171231

REACTIONS (2)
  - Chronic kidney disease [Not Recovered/Not Resolved]
  - Vitamin D deficiency [Not Recovered/Not Resolved]

NARRATIVE: CASE EVENT DATE: 20210101
